FAERS Safety Report 8637123 (Version 2)
Quarter: 2012Q4

REPORT INFORMATION
  Report Type: 
  Country: US (occurrence: US)
  Receive Date: 20120627
  Receipt Date: 20121010
  Transmission Date: 20130627
  Serious: Yes (Hospitalization, Other)
  Sender: FDA-Public Use
  Company Number: US-BRISTOL-MYERS SQUIBB COMPANY-16692204

PATIENT
  Age: 59 Year
  Sex: Female
  Weight: 98 kg

DRUGS (5)
  1. ONGLYZA TABS [Suspect]
     Indication: DIABETES MELLITUS
     Route: 048
  2. METFORMIN HCL [Suspect]
     Indication: DIABETES MELLITUS
     Dates: start: 2000
  3. NEXIUM [Suspect]
  4. GLYBURIDE [Suspect]
  5. LIPITOR [Concomitant]
     Indication: BLOOD CHOLESTEROL INCREASED

REACTIONS (9)
  - Suicide attempt [Unknown]
  - Back disorder [Unknown]
  - Hiatus hernia [Unknown]
  - Immobile [Unknown]
  - Sleep apnoea syndrome [Unknown]
  - Depression [Unknown]
  - Arthropathy [Unknown]
  - Spinal disorder [Unknown]
  - Nasopharyngitis [Unknown]
